FAERS Safety Report 23050343 (Version 3)
Quarter: 2023Q4

REPORT INFORMATION
  Report Type: Report from Study
  Country: US (occurrence: US)
  Receive Date: 20231010
  Receipt Date: 20231013
  Transmission Date: 20240110
  Serious: Yes (Death, Hospitalization, Other)
  Sender: FDA-Public Use
  Company Number: US-002147023-NVSC2023US179695

PATIENT
  Age: 51 Year
  Sex: Male
  Weight: 39.9 kg

DRUGS (17)
  1. LAMPRENE [Suspect]
     Active Substance: CLOFAZIMINE
     Indication: Mycobacterium avium complex infection
     Dosage: 200 MG, QD
     Route: 048
     Dates: start: 200106, end: 20230712
  2. LAMPRENE [Suspect]
     Active Substance: CLOFAZIMINE
     Dosage: 100 MG
     Route: 048
     Dates: start: 20210821, end: 20230920
  3. MORPHINE SULFATE [Suspect]
     Active Substance: MORPHINE SULFATE
     Indication: Back pain
     Dosage: 1.5 ML, Q6H, PRN
     Route: 065
     Dates: start: 20230822, end: 20230920
  4. PANTOPRAZOLE [Concomitant]
     Active Substance: PANTOPRAZOLE
     Indication: Oesophagitis
     Dosage: 40 MG, BID
     Route: 048
     Dates: start: 20230715
  5. PANTOPRAZOLE [Concomitant]
     Active Substance: PANTOPRAZOLE
     Dosage: 40 MG, QD
     Route: 048
     Dates: start: 20230823
  6. DORNASE ALFA [Concomitant]
     Active Substance: DORNASE ALFA
     Indication: Product used for unknown indication
     Dosage: 2.5 MG, QD
  7. INSULIN GLARGINE [Concomitant]
     Active Substance: INSULIN GLARGINE
     Indication: Product used for unknown indication
     Dosage: 14 DOSAGE FORM (QAM SQ)
     Route: 058
  8. INSULIN GLARGINE [Concomitant]
     Active Substance: INSULIN GLARGINE
     Indication: Product used for unknown indication
     Dosage: 6 DOSAGE FORM, BID
     Route: 058
  9. CREON [Concomitant]
     Active Substance: PANCRELIPASE AMYLASE\PANCRELIPASE LIPASE\PANCRELIPASE PROTEASE
     Indication: Pancreatic enzymes
     Dosage: 1 DOSAGE FORM, TID (20, 63 AN 84K)
     Route: 048
  10. ALBUTEROL [Concomitant]
     Active Substance: ALBUTEROL
     Indication: Wheezing
     Dosage: 3 ML, BID ((2.5 MG TOTAL) BY NEBULIZATION 540 ML) (3 REFILL)
  11. ALBUTEROL [Concomitant]
     Active Substance: ALBUTEROL
     Dosage: UNK, Q6H (INHALE 2 PUFFS) (90 MCG/ACTUATION INHALER)
  12. ZOLOFT [Concomitant]
     Active Substance: SERTRALINE HYDROCHLORIDE
     Indication: Product used for unknown indication
     Dosage: 1 DOSAGE FORM, QD (90 TABLET)
     Route: 048
  13. SODIUM CHLORIDE [Concomitant]
     Active Substance: SODIUM CHLORIDE
     Indication: Product used for unknown indication
     Dosage: 4 ML, BID (240 ML) (11 REFILL)
  14. AMIKACIN [Concomitant]
     Active Substance: AMIKACIN
     Indication: Atypical mycobacterial infection
     Dosage: 440 MG, QD
     Route: 042
  15. AZITHROMYCIN [Concomitant]
     Active Substance: AZITHROMYCIN
     Indication: Atypical mycobacterial infection
     Dosage: 500 MG, QD
     Route: 048
  16. ETHAMBUTOL [Concomitant]
     Active Substance: ETHAMBUTOL HYDROCHLORIDE
     Indication: Product used for unknown indication
     Dosage: 800 MG, QD
     Route: 048
  17. PHYTONADIONE [Concomitant]
     Active Substance: PHYTONADIONE
     Indication: Atypical mycobacterial infection
     Dosage: 5 MG (SUNDAY AND WEDNESDAY)
     Route: 048

REACTIONS (8)
  - Respiratory failure [Fatal]
  - Hypoxia [Fatal]
  - Hypotension [Fatal]
  - Respiratory acidosis [Fatal]
  - Hypercapnia [Fatal]
  - Metabolic encephalopathy [Fatal]
  - Abnormal loss of weight [Not Recovered/Not Resolved]
  - Overdose [Unknown]

NARRATIVE: CASE EVENT DATE: 20230928
